FAERS Safety Report 10206429 (Version 5)
Quarter: 2015Q1

REPORT INFORMATION
  Report Type: Spontaneous
  Country: CA (occurrence: CA)
  Receive Date: 20140530
  Receipt Date: 20150326
  Transmission Date: 20150720
  Serious: Yes (Other)
  Sender: FDA-Public Use
  Company Number: CA-ROCHE-1408363

PATIENT
  Age: 46 Year
  Sex: Female

DRUGS (13)
  1. XOLAIR [Suspect]
     Active Substance: OMALIZUMAB
     Route: 058
     Dates: start: 20131204
  2. XOLAIR [Suspect]
     Active Substance: OMALIZUMAB
     Route: 058
     Dates: start: 20140617
  3. XOLAIR [Suspect]
     Active Substance: OMALIZUMAB
     Route: 058
     Dates: start: 20140812
  4. XOLAIR [Suspect]
     Active Substance: OMALIZUMAB
     Route: 058
     Dates: start: 20141104
  5. XOLAIR [Suspect]
     Active Substance: OMALIZUMAB
     Route: 058
     Dates: start: 20120209
  6. XOLAIR [Suspect]
     Active Substance: OMALIZUMAB
     Route: 058
     Dates: start: 20150317
  7. ALVESCO [Concomitant]
     Active Substance: CICLESONIDE
     Route: 065
     Dates: start: 201410
  8. XOLAIR [Suspect]
     Active Substance: OMALIZUMAB
     Indication: ASTHMA
     Route: 058
     Dates: start: 20110526
  9. XOLAIR [Suspect]
     Active Substance: OMALIZUMAB
     Route: 058
     Dates: start: 20131231
  10. XOLAIR [Suspect]
     Active Substance: OMALIZUMAB
     Route: 058
     Dates: start: 20140226
  11. XOLAIR [Suspect]
     Active Substance: OMALIZUMAB
     Route: 058
     Dates: start: 20131106
  12. PULMICORT TURBUHALER [Concomitant]
     Active Substance: BUDESONIDE
  13. BRICANYL [Concomitant]
     Active Substance: TERBUTALINE SULFATE

REACTIONS (20)
  - Chest discomfort [Unknown]
  - Food allergy [Unknown]
  - Oedema [Recovered/Resolved]
  - Upper respiratory tract infection [Recovering/Resolving]
  - Limb injury [Unknown]
  - Body temperature decreased [Not Recovered/Not Resolved]
  - Scratch [Recovering/Resolving]
  - Skin abrasion [Recovering/Resolving]
  - Bronchitis [Unknown]
  - Gait disturbance [Unknown]
  - Rhonchi [Unknown]
  - Upper respiratory tract congestion [Unknown]
  - Mouth injury [Recovering/Resolving]
  - Limb discomfort [Recovered/Resolved]
  - Skeletal injury [Recovering/Resolving]
  - Muscle injury [Recovering/Resolving]
  - Road traffic accident [Unknown]
  - Wheezing [Unknown]
  - Erythema [Unknown]
  - Pain in extremity [Unknown]

NARRATIVE: CASE EVENT DATE: 201112
